FAERS Safety Report 16705940 (Version 1)
Quarter: 2019Q3

REPORT INFORMATION
  Report Type: Spontaneous
  Country: US (occurrence: US)
  Receive Date: 20190628
  Receipt Date: 20190628
  Transmission Date: 20191004
  Serious: Yes (Hospitalization)
  Sender: FDA-Public Use
  Company Number: None

PATIENT
  Age: 15 Year
  Sex: Female
  Weight: 43.6 kg

DRUGS (21)
  1. DEXAMETHASONE. [Suspect]
     Active Substance: DEXAMETHASONE
     Dates: end: 20190510
  2. SULFAMETHOXAZOLE-TRIMETHOPRIM [Concomitant]
     Active Substance: SULFAMETHOXAZOLE\TRIMETHOPRIM
  3. VANCOMYCIN [Concomitant]
     Active Substance: VANCOMYCIN
  4. VINCRISTINE SULFATE. [Suspect]
     Active Substance: VINCRISTINE SULFATE
     Dates: end: 20190506
  5. HYDROXYZINE [Concomitant]
     Active Substance: HYDROXYZINE HYDROCHLORIDE
  6. ONDANSETRON [Concomitant]
     Active Substance: ONDANSETRON
  7. POLYETHYLENE GLYCOL [Concomitant]
     Active Substance: POLYETHYLENE GLYCOLS
  8. CELECOXIB. [Concomitant]
     Active Substance: CELECOXIB
  9. MEROPENEM. [Concomitant]
     Active Substance: MEROPENEM
  10. PIPERACILLION-TAZOBACTAM [Concomitant]
  11. ONCASPAR [Suspect]
     Active Substance: PEGASPARGASE
     Dates: end: 20190515
  12. FLUCONAZOLE. [Concomitant]
     Active Substance: FLUCONAZOLE
  13. LEVOFLOXACIN. [Concomitant]
     Active Substance: LEVOFLOXACIN
  14. MEGESTROL [Concomitant]
     Active Substance: MEGESTROL
  15. MIRTAZAPINE. [Concomitant]
     Active Substance: MIRTAZAPINE
  16. CEFEPIME [Concomitant]
     Active Substance: CEFEPIME HYDROCHLORIDE
  17. METHOTREXATE. [Suspect]
     Active Substance: METHOTREXATE
     Dates: end: 20190506
  18. GRANISETRON [Concomitant]
     Active Substance: GRANISETRON
  19. CYTARABINE. [Suspect]
     Active Substance: CYTARABINE
     Dates: end: 20190515
  20. CLINDAMYCIN. [Concomitant]
     Active Substance: CLINDAMYCIN
  21. DIPHENHYDRAMINE. [Concomitant]
     Active Substance: DIPHENHYDRAMINE

REACTIONS (3)
  - Colitis [None]
  - Appendicitis [None]
  - Abdominal pain [None]

NARRATIVE: CASE EVENT DATE: 20190604
